FAERS Safety Report 6885683-9 (Version None)
Quarter: 2010Q3

REPORT INFORMATION
  Report Type: 
  Country: None (occurrence: None)
  Receive Date: 20100729
  Receipt Date: 20080830
  Transmission Date: 20110219
  Serious: Yes (Other)
  Sender: FDA-Public Use
  Company Number: US-PFIZER INC-2008047103

PATIENT
  Age: 85 Year
  Sex: Female

DRUGS (12)
  1. CELEBREX [Suspect]
     Indication: ARTHRALGIA
     Dates: start: 20070901
  2. ASPIRIN [Concomitant]
     Indication: PROPHYLAXIS
  3. NEXIUM [Concomitant]
  4. SYNTHROID [Concomitant]
     Indication: HYPOTHYROIDISM
  5. CALTRATE + D [Concomitant]
  6. LIPITOR [Concomitant]
     Indication: DYSLIPIDAEMIA
  7. LOTREL [Concomitant]
  8. VERELAN [Concomitant]
  9. MULTI-VITAMINS [Concomitant]
  10. LEVOTHYROXINE SODIUM [Concomitant]
  11. MOBIC [Concomitant]
     Dates: start: 20061219, end: 20070321
  12. CORTICOSTEROIDS [Concomitant]
     Route: 035
     Dates: start: 20061101

REACTIONS (2)
  - ANAEMIA [None]
  - GASTRIC ULCER HAEMORRHAGE [None]
